FAERS Safety Report 6506897-3 (Version None)
Quarter: 2009Q4

REPORT INFORMATION
  Report Type: 
  Country: None (occurrence: None)
  Receive Date: 20091216
  Receipt Date: 20091202
  Transmission Date: 20100525
  Serious: Yes (Other)
  Sender: FDA-Public Use
  Company Number: 235020K09USA

PATIENT
  Age: 21 Year
  Sex: Female

DRUGS (3)
  1. REBIF [Suspect]
     Indication: MULTIPLE SCLEROSIS
     Dosage: 44 MCG, 3 IN 1 WEEKS, SUBCUTANEOUS
     Route: 058
     Dates: start: 20081121
  2. TOPAMAX [Concomitant]
  3. MENINGITIS VACCINE (MENINGOCOCCAL POLYSACCHARIDE) [Concomitant]

REACTIONS (11)
  - BALANCE DISORDER [None]
  - BLINDNESS TRANSIENT [None]
  - CONVULSION [None]
  - FALL [None]
  - FATIGUE [None]
  - FEELING ABNORMAL [None]
  - GRIP STRENGTH DECREASED [None]
  - MUSCLE TWITCHING [None]
  - MUSCULOSKELETAL DISORDER [None]
  - THIRST [None]
  - VISION BLURRED [None]
